FAERS Safety Report 8415416-6 (Version None)
Quarter: 2012Q2

REPORT INFORMATION
  Report Type: 
  Country: None (occurrence: None)
  Receive Date: 20120323
  Receipt Date: 20111209
  Transmission Date: 20120825
  Serious: Yes (Hospitalization)
  Sender: FDA-Public Use
  Company Number: 163-21880-11121518

PATIENT
  Age: 77 Year
  Sex: Male
  Weight: 92.4 kg

DRUGS (1)
  1. REVLIMID [Suspect]
     Indication: MULTIPLE MYELOMA
     Dosage: 10 MG, 1 IN 1 D, PO
     Route: 048
     Dates: start: 20110501

REACTIONS (6)
  - PLATELET COUNT DECREASED [None]
  - DIARRHOEA [None]
  - FATIGUE [None]
  - THROMBOSIS [None]
  - URINARY TRACT INFECTION [None]
  - PRURITUS [None]
